FAERS Safety Report 24016050 (Version 1)
Quarter: 2024Q2

REPORT INFORMATION
  Report Type: Spontaneous
  Country: US (occurrence: US)
  Receive Date: 20240626
  Receipt Date: 20240626
  Transmission Date: 20240715
  Serious: Yes (Hospitalization, Other)
  Sender: FDA-Public Use
  Company Number: US-FreseniusKabi-FK202410016

PATIENT
  Age: 33 Year
  Sex: Female

DRUGS (3)
  1. PROGESTERONE [Suspect]
     Active Substance: PROGESTERONE
     Indication: High risk pregnancy
     Dosage: ROUTE OF ADMIN: INTRAMUSCULAR (IM)?DAILY
  2. PROGESTERONE [Suspect]
     Active Substance: PROGESTERONE
     Indication: In vitro fertilisation
  3. ESTROGENS [Concomitant]
     Active Substance: ESTROGENS
     Indication: High risk pregnancy

REACTIONS (2)
  - Eosinophilic pneumonia acute [Recovered/Resolved]
  - Maternal exposure during pregnancy [Unknown]
